FAERS Safety Report 6679402-9 (Version None)
Quarter: 2010Q2

REPORT INFORMATION
  Report Type: 
  Country: None (occurrence: None)
  Receive Date: 20100413
  Receipt Date: 20100316
  Transmission Date: 20101027
  Serious: Yes (Hospitalization)
  Sender: FDA-Public Use
  Company Number: US-ROCHE-695465

PATIENT
  Age: 50 Year
  Sex: Female
  Weight: 79.6 kg

DRUGS (5)
  1. TRASTUZUMAB [Suspect]
     Indication: BREAST CANCER
     Route: 050
  2. CLODRONIC ACID [Suspect]
     Indication: BREAST CANCER
     Dosage: DOSE: 1600 MG EVERYDAY FOR 3 YEARS.
     Route: 048
     Dates: start: 20100128, end: 20100308
  3. PARAPLATIN [Suspect]
     Indication: BREAST CANCER
     Route: 065
  4. TAXOTERE [Suspect]
     Indication: BREAST CANCER
     Route: 065
  5. NEULASTA [Concomitant]

REACTIONS (4)
  - DECREASED APPETITE [None]
  - DEHYDRATION [None]
  - FATIGUE [None]
  - HYPOKALAEMIA [None]
